FAERS Safety Report 17059127 (Version 2)
Quarter: 2020Q3

REPORT INFORMATION
  Report Type: Spontaneous
  Country: US (occurrence: US)
  Receive Date: 20191121
  Receipt Date: 20200701
  Transmission Date: 20201102
  Serious: No
  Sender: FDA-Public Use
  Company Number: US-PFIZER INC-2019503703

PATIENT
  Age: 58 Year
  Sex: Female

DRUGS (5)
  1. CLENPIQ [Concomitant]
     Active Substance: ANHYDROUS CITRIC ACID\MAGNESIUM OXIDE\SODIUM PICOSULFATE
     Dosage: UNK
  2. LETROZOLE. [Concomitant]
     Active Substance: LETROZOLE
  3. TRAMADOL. [Concomitant]
     Active Substance: TRAMADOL
  4. GABAPENTIN. [Concomitant]
     Active Substance: GABAPENTIN
  5. IBRANCE [Suspect]
     Active Substance: PALBOCICLIB
     Indication: BREAST CANCER METASTATIC
     Dosage: 100 MG, CYCLIC (1 CAPSULE DAILY FOR 21 DAYS, THEN STOP FOR 7 DAYS)
     Route: 048

REACTIONS (3)
  - White blood cell count decreased [Unknown]
  - Alopecia [Unknown]
  - Nail disorder [Unknown]
